FAERS Safety Report 18643932 (Version 2)
Quarter: 2020Q4

REPORT INFORMATION
  Report Type: Spontaneous
  Country: ES (occurrence: ES)
  Receive Date: 20201221
  Receipt Date: 20201229
  Transmission Date: 20210114
  Serious: Yes (Other)
  Sender: FDA-Public Use
  Company Number: NVSC2020ES329610

PATIENT
  Age: 1 Year
  Sex: Female
  Weight: 8 kg

DRUGS (15)
  1. PREDNISOLONE. [Concomitant]
     Active Substance: PREDNISOLONE
     Dosage: 0.5 MG/KG, QD
     Route: 065
  2. PREDNISOLONE. [Concomitant]
     Active Substance: PREDNISOLONE
     Indication: PRODUCT USED FOR UNKNOWN INDICATION
     Dosage: 2 MG/KG, QD
     Route: 065
     Dates: start: 20180215
  3. CYCLOSPORIN [Concomitant]
     Active Substance: CYCLOSPORINE
     Dosage: 3 MG/KG, QD
     Route: 065
  4. CEFTAZIDIME. [Concomitant]
     Active Substance: CEFTAZIDIME
     Indication: PRODUCT USED FOR UNKNOWN INDICATION
     Dosage: UNK
     Route: 065
  5. CANAKINUMAB. [Suspect]
     Active Substance: CANAKINUMAB
     Dosage: 8 MG/KG, Q4W
     Route: 065
     Dates: start: 20180425
  6. VANCOMYCIN [Concomitant]
     Active Substance: VANCOMYCIN
     Indication: PRODUCT USED FOR UNKNOWN INDICATION
     Dosage: UNK
     Route: 065
  7. PREDNISOLONE. [Concomitant]
     Active Substance: PREDNISOLONE
     Dosage: 1 MG/KG, QD
     Route: 065
     Dates: start: 20180425
  8. CYCLOSPORIN [Concomitant]
     Active Substance: CYCLOSPORINE
     Indication: PRODUCT USED FOR UNKNOWN INDICATION
     Dosage: 2 MG/KG, QD
     Route: 065
     Dates: start: 20180215
  9. TOCILIZUMAB. [Concomitant]
     Active Substance: TOCILIZUMAB
     Indication: PRODUCT USED FOR UNKNOWN INDICATION
     Dosage: 12 MG/KG
     Route: 065
  10. CANAKINUMAB. [Suspect]
     Active Substance: CANAKINUMAB
     Indication: CRYOPYRIN ASSOCIATED PERIODIC SYNDROME
     Dosage: 4 MG/KG
     Route: 065
     Dates: start: 20170307
  11. CANAKINUMAB. [Suspect]
     Active Substance: CANAKINUMAB
     Dosage: 8 MG/KG, Q4W
     Route: 065
     Dates: start: 20181107
  12. TACROLIMUS. [Concomitant]
     Active Substance: TACROLIMUS
     Indication: PRODUCT USED FOR UNKNOWN INDICATION
     Dosage: 0.2 MG/KG, QD
     Route: 065
     Dates: start: 20180425
  13. CANAKINUMAB. [Suspect]
     Active Substance: CANAKINUMAB
     Dosage: 4 MG/KG
     Route: 065
  14. CANAKINUMAB. [Suspect]
     Active Substance: CANAKINUMAB
     Dosage: 8 MG/KG, Q4W
     Route: 065
     Dates: start: 20180215
  15. TACROLIMUS. [Concomitant]
     Active Substance: TACROLIMUS
     Dosage: 0.2 MG/KG, QD
     Route: 065
     Dates: start: 20181107

REACTIONS (18)
  - Still^s disease [Unknown]
  - Haemophagocytic lymphohistiocytosis [Unknown]
  - Activated partial thromboplastin time prolonged [Unknown]
  - Glomerular filtration rate increased [Unknown]
  - Drug hypersensitivity [Unknown]
  - Blood urea increased [Unknown]
  - Clubbing [Unknown]
  - Aspartate aminotransferase increased [Unknown]
  - Prothrombin level increased [Unknown]
  - Respiratory disorder [Unknown]
  - Red blood cell sedimentation rate abnormal [Unknown]
  - Pneumocystis jirovecii infection [Unknown]
  - Mycobacterium avium complex infection [Unknown]
  - Pancytopenia [Unknown]
  - Interstitial lung disease [Unknown]
  - C-reactive protein increased [Unknown]
  - Alanine aminotransferase increased [Unknown]
  - Drug ineffective [Unknown]

NARRATIVE: CASE EVENT DATE: 20170307
